FAERS Safety Report 6418914-X (Version None)
Quarter: 2009Q4

REPORT INFORMATION
  Report Type: 
  Country: None (occurrence: None)
  Receive Date: 20091029
  Receipt Date: 20091014
  Transmission Date: 20100525
  Serious: Yes (Other)
  Sender: FDA-Public Use
  Company Number: US-BAYER-200935489NA

PATIENT
  Age: 61 Year
  Sex: Female

DRUGS (2)
  1. BETASERON [Suspect]
     Indication: MULTIPLE SCLEROSIS
     Route: 058
     Dates: start: 19920101, end: 19950101
  2. AVONEX [Suspect]
     Indication: MULTIPLE SCLEROSIS
     Route: 065
     Dates: start: 19970701, end: 20060812

REACTIONS (2)
  - NEPHRITIC SYNDROME [None]
  - NEPHROTIC SYNDROME [None]
